FAERS Safety Report 24777642 (Version 1)
Quarter: 2024Q4

REPORT INFORMATION
  Report Type: Spontaneous
  Country: US (occurrence: US)
  Receive Date: 20241226
  Receipt Date: 20241226
  Transmission Date: 20250115
  Serious: No
  Sender: PFIZER
  Company Number: US-PFIZER INC-PV202400149908

PATIENT

DRUGS (2)
  1. GENOTROPIN [Suspect]
     Active Substance: SOMATROPIN
     Dosage: 0.4 MG AND 0.5 MG EVERY OTHER NIGHT UNDER THE SKIN 1 TIME A DAY
     Route: 058
  2. GENOTROPIN [Suspect]
     Active Substance: SOMATROPIN
     Dosage: 0.4 MG AND 0.5 MG EVERY OTHER NIGHT UNDER THE SKIN 1 TIME A DAY
     Route: 058

REACTIONS (2)
  - Device mechanical issue [Unknown]
  - Incorrect dose administered by device [Unknown]
